FAERS Safety Report 4514246-5 (Version None)
Quarter: 2004Q4

REPORT INFORMATION
  Report Type: 
  Country: None (occurrence: None)
  Receive Date: 20041124
  Receipt Date: 20041104
  Transmission Date: 20050328
  Serious: Yes (Death, Hospitalization)
  Sender: FDA-Public Use
  Company Number: FR_040504138

PATIENT
  Age: 50 Year
  Sex: Female
  Weight: 53 kg

DRUGS (2)
  1. GEMZAR [Suspect]
     Indication: ADENOCARCINOMA
     Dosage: 1000 MG/1 OTHER
     Route: 050
     Dates: start: 20040401, end: 20040401
  2. GEMZAR [Suspect]
     Indication: METASTASIS
     Dosage: 1000 MG/1 OTHER
     Route: 050
     Dates: start: 20040401, end: 20040401

REACTIONS (3)
  - MALIGNANT NEOPLASM PROGRESSION [None]
  - PULMONARY HYPERTENSION [None]
  - RIGHT VENTRICULAR FAILURE [None]
